FAERS Safety Report 18094694 (Version 2)
Quarter: 2020Q3

REPORT INFORMATION
  Report Type: Spontaneous
  Country: US (occurrence: US)
  Receive Date: 20200731
  Receipt Date: 20200811
  Transmission Date: 20201103
  Serious: Yes (Hospitalization, Other)
  Sender: FDA-Public Use
  Company Number: US-AUROBINDO-AUR-APL-2020-036911

PATIENT
  Age: 43 Year
  Sex: Male

DRUGS (9)
  1. LORAZEPAM. [Concomitant]
     Active Substance: LORAZEPAM
     Indication: STATUS EPILEPTICUS
     Dosage: UNK
     Route: 042
  2. VALPROIC ACID. [Interacting]
     Active Substance: VALPROIC ACID
     Dosage: 750 MILLIGRAM
     Route: 042
  3. LEVETIRACETAM. [Concomitant]
     Active Substance: LEVETIRACETAM
     Dosage: 4000 MILLIGRAM, ONCE A DAY
     Route: 065
  4. VALPROIC ACID. [Interacting]
     Active Substance: VALPROIC ACID
     Dosage: 1500 MILLIGRAM, ONCE A DAY
     Route: 065
  5. ZONISAMIDE. [Interacting]
     Active Substance: ZONISAMIDE
     Dosage: 350 MILLIGRAM, ONCE A DAY
     Route: 065
  6. ZONISAMIDE. [Suspect]
     Active Substance: ZONISAMIDE
     Indication: PARTIAL SEIZURES
     Dosage: 500 MILLIGRAM, ONCE A DAY
     Route: 065
  7. ZONISAMIDE. [Interacting]
     Active Substance: ZONISAMIDE
     Dosage: 50 MILLIGRAM, ONCE A DAY
     Route: 065
  8. VALPROIC ACID. [Interacting]
     Active Substance: VALPROIC ACID
     Indication: PARTIAL SEIZURES
     Dosage: 2000 MILLIGRAM, ONCE A DAY
     Route: 065
  9. LEVETIRACETAM. [Concomitant]
     Active Substance: LEVETIRACETAM
     Indication: PARTIAL SEIZURES
     Dosage: 2000 MILLIGRAM
     Route: 065

REACTIONS (7)
  - Cytotoxic oedema [Recovering/Resolving]
  - Metabolic acidosis [Recovering/Resolving]
  - Hyperammonaemic encephalopathy [Recovering/Resolving]
  - Aminoaciduria [Recovering/Resolving]
  - Weight increased [Unknown]
  - Pneumonia [Recovering/Resolving]
  - Drug interaction [Recovering/Resolving]
